FAERS Safety Report 4307454-X (Version None)
Quarter: 2004Q1

REPORT INFORMATION
  Report Type: 
  Country: None (occurrence: None)
  Receive Date: 20040226
  Receipt Date: 20040217
  Transmission Date: 20041129
  Serious: Yes (Other)
  Sender: FDA-Public Use
  Company Number: CA-JNJFOC-20040203780

PATIENT
  Age: 46 Year
  Sex: Female
  Weight: 61.2356 kg

DRUGS (8)
  1. REMICADE [Suspect]
     Indication: CROHN'S DISEASE
     Dosage: INTRAVENOUS
     Route: 042
     Dates: start: 20040206
  2. CIPRO [Concomitant]
  3. FLAGYL [Concomitant]
  4. CELEXA [Concomitant]
  5. ROCALTOL (CALCITRIOL) [Concomitant]
  6. LEVOTHYROXIN (LEVOTHYROXINE) [Concomitant]
  7. PANTOLOC (PANTOPRAZOLE) [Concomitant]
  8. PREDNISONE [Concomitant]

REACTIONS (3)
  - CARCINOMA [None]
  - FISTULA [None]
  - HAEMORRHAGE [None]
